FAERS Safety Report 23936915 (Version 3)
Quarter: 2024Q2

REPORT INFORMATION
  Report Type: Spontaneous
  Country: JP (occurrence: JP)
  Receive Date: 20240604
  Receipt Date: 20240627
  Transmission Date: 20240716
  Serious: Yes (Death, Other)
  Sender: FDA-Public Use
  Company Number: JP-GENMAB-2024-01921

PATIENT
  Age: 67 Year
  Sex: Male

DRUGS (11)
  1. EPKINLY [Suspect]
     Active Substance: EPCORITAMAB-BYSP
     Indication: Diffuse large B-cell lymphoma
     Dosage: 0.16 MILLIGRAM, SINGLE, THE FIRST ADMINISTRATION
     Route: 058
     Dates: start: 20240122, end: 20240122
  2. EPKINLY [Suspect]
     Active Substance: EPCORITAMAB-BYSP
     Dosage: 0.8 MILLIGRAM, SINGLE, THE SECOND ADMINISTRATION
     Route: 058
     Dates: start: 20240129, end: 20240129
  3. EPKINLY [Suspect]
     Active Substance: EPCORITAMAB-BYSP
     Dosage: 48 MILLIGRAM, THE THIRD ADMINISTRATION, FOURTH ADMINISTRATION AND FIFTH ADMINISTRATION
     Route: 058
     Dates: start: 20240205, end: 20240219
  4. IRINOTECAN HYDROCHLORIDE [Concomitant]
     Active Substance: IRINOTECAN HYDROCHLORIDE
     Indication: Diffuse large B-cell lymphoma
     Dosage: UNK, CMD THERAPY,ONE COURSE WAS PERFORMED
     Dates: start: 20240111, end: 202401
  5. MITOXANTRONE HYDROCHLORIDE [Concomitant]
     Active Substance: MITOXANTRONE HYDROCHLORIDE
     Indication: Diffuse large B-cell lymphoma
     Dosage: UNK, CMD THERAPY,ONE COURSE WAS PERFORMED
     Dates: start: 20240111, end: 202401
  6. PREDNISOLONE [Concomitant]
     Active Substance: PREDNISOLONE
     Indication: Prophylaxis
     Dosage: 100 MILLIGRAM, DURING CYCLE 1
     Dates: start: 20240122, end: 202402
  7. PREDNISOLONE [Concomitant]
     Active Substance: PREDNISOLONE
     Dosage: 100 MILLIGRAM, THE DAY OF FIFTH ADMINISTRATION OF EPKINLY
     Dates: start: 20240219, end: 20240219
  8. DECADRON [Concomitant]
     Active Substance: DEXAMETHASONE
     Indication: Prophylaxis
     Dosage: 4 MILLIGRAM, AFTER THE FOURTH ADMINISTRATION OF EPKINLY, ORAL ADMINISTRATION WAS CONTINUED
     Route: 048
     Dates: start: 202402
  9. DECADRON [Concomitant]
     Active Substance: DEXAMETHASONE
     Indication: Palliative care
     Dosage: 4 MILLIGRAM, THE NEXT DAY OF FIFTH ADMINISTRATION OF EPKINLY
     Dates: start: 20240220, end: 20240220
  10. CALONAL [Concomitant]
     Active Substance: ACETAMINOPHEN
     Indication: Prophylaxis
     Dosage: 800 MILLIGRAM, DURING CYCLE 1
     Dates: start: 20240122, end: 202402
  11. NIPOLAZIN [Concomitant]
     Indication: Prophylaxis
     Dosage: 3 MILLIGRAM, 15 TABLETS, DURING CYCLE 1
     Dates: start: 20240122, end: 202402

REACTIONS (5)
  - Tumour lysis syndrome [Fatal]
  - Diffuse large B-cell lymphoma [Fatal]
  - Cytokine release syndrome [Recovering/Resolving]
  - General physical health deterioration [Unknown]
  - Pyrexia [Recovering/Resolving]

NARRATIVE: CASE EVENT DATE: 20240101
